FAERS Safety Report 6327431-7 (Version None)
Quarter: 2009Q3

REPORT INFORMATION
  Report Type: 
  Country: None (occurrence: None)
  Receive Date: 20090821
  Receipt Date: 20090810
  Transmission Date: 20100115
  Serious: No
  Sender: FDA-Public Use
  Company Number: ADR11522009

PATIENT
  Age: 80 Year
  Sex: Female

DRUGS (7)
  1. FOSINOPRIL SODIUM [Suspect]
     Indication: HYPERTENSION
     Dosage: ORAL USE
     Route: 048
     Dates: start: 19970101, end: 20080101
  2. AMLODIPINE [Concomitant]
  3. BENDROFLUAZIDE [Concomitant]
  4. DOXAZOSIN [Concomitant]
  5. SIMVASTATIN [Suspect]
  6. TEMAZEPAM [Concomitant]
  7. WARFARIN SODIUM [Concomitant]

REACTIONS (2)
  - ARTHRALGIA [None]
  - MOVEMENT DISORDER [None]
